FAERS Safety Report 21685945 (Version 1)
Quarter: 2022Q4

REPORT INFORMATION
  Report Type: Report from Study
  Country: US (occurrence: US)
  Receive Date: 20221206
  Receipt Date: 20221206
  Transmission Date: 20230113
  Serious: No
  Sender: FDA-Public Use
  Company Number: US-ABBVIE-4182713

PATIENT
  Age: 35 Year
  Sex: Male

DRUGS (2)
  1. SKYRIZI [Suspect]
     Active Substance: RISANKIZUMAB-RZAA
     Indication: Psoriasis
     Dosage: WEEK 0, THEN WEEK 4, THEN EVERY 12 WEEKS THEREAFTER, FORM STRENGTH-15 MILLIGRAMS.
     Route: 058
     Dates: start: 20221020
  2. SKYRIZI [Suspect]
     Active Substance: RISANKIZUMAB-RZAA
     Indication: Psoriatic arthropathy

REACTIONS (8)
  - Pain in extremity [Unknown]
  - Pain of skin [Unknown]
  - Burning sensation [Unknown]
  - Pruritus [Unknown]
  - Erythema [Unknown]
  - Loss of personal independence in daily activities [Unknown]
  - Wrong technique in product usage process [Unknown]
  - Impaired work ability [Unknown]

NARRATIVE: CASE EVENT DATE: 20221001
